FAERS Safety Report 20716725 (Version 5)
Quarter: 2022Q3

REPORT INFORMATION
  Report Type: Report from Study
  Country: DE (occurrence: DE)
  Receive Date: 20220416
  Receipt Date: 20220825
  Transmission Date: 20221026
  Serious: Yes (Hospitalization, Other)
  Sender: FDA-Public Use
  Company Number: DE-BRISTOL-MYERS SQUIBB COMPANY-2022-017671

PATIENT
  Age: 65 Year
  Sex: Male
  Weight: 84 kg

DRUGS (17)
  1. NIVOLUMAB [Suspect]
     Active Substance: NIVOLUMAB
     Indication: Oesophageal adenocarcinoma
     Route: 042
     Dates: start: 20220121, end: 20220401
  2. LEUCOVORIN CALCIUM [Suspect]
     Active Substance: LEUCOVORIN CALCIUM
     Indication: Nodal rhythm
     Route: 042
     Dates: start: 20220302, end: 20220401
  3. LEUCOVORIN CALCIUM [Suspect]
     Active Substance: LEUCOVORIN CALCIUM
     Route: 042
     Dates: start: 20220407
  4. DOCETAXEL [Suspect]
     Active Substance: DOCETAXEL
     Indication: Oesophageal adenocarcinoma
     Route: 042
     Dates: start: 20220302, end: 20220401
  5. DOCETAXEL [Suspect]
     Active Substance: DOCETAXEL
     Route: 042
     Dates: start: 20220407
  6. OXALIPLATIN [Suspect]
     Active Substance: OXALIPLATIN
     Indication: Oesophageal adenocarcinoma
     Route: 042
     Dates: start: 20220302, end: 20220401
  7. OXALIPLATIN [Suspect]
     Active Substance: OXALIPLATIN
     Route: 042
     Dates: start: 20220407
  8. FLUOROURACIL [Suspect]
     Active Substance: FLUOROURACIL
     Indication: Oesophageal adenocarcinoma
     Route: 042
     Dates: start: 20220302, end: 20220401
  9. FLUOROURACIL [Suspect]
     Active Substance: FLUOROURACIL
     Route: 042
     Dates: start: 20220407
  10. RAMIPRIL [Concomitant]
     Active Substance: RAMIPRIL
     Indication: Hypertension
     Dosage: 1-0-0
     Route: 048
  11. OMEPRAZOLE [Concomitant]
     Active Substance: OMEPRAZOLE
     Indication: Prophylaxis
     Dosage: 1-0-1
     Route: 048
     Dates: start: 20211205
  12. SPIRONOLACTONE [Concomitant]
     Active Substance: SPIRONOLACTONE
     Indication: Hypertension
     Dosage: EVERY 2 DAYS, 1-0-0
     Route: 048
     Dates: end: 20220404
  13. SPIRONOLACTONE [Concomitant]
     Active Substance: SPIRONOLACTONE
     Route: 048
     Dates: start: 20220405, end: 20220406
  14. SPIRONOLACTONE [Concomitant]
     Active Substance: SPIRONOLACTONE
     Route: 048
     Dates: start: 20220407
  15. BISOPROLOL [Concomitant]
     Active Substance: BISOPROLOL
     Indication: Hypertension
     Dosage: 0-0-1
     Route: 048
  16. TAMSULOSIN [Concomitant]
     Active Substance: TAMSULOSIN
     Indication: Benign prostatic hyperplasia
     Dosage: 1-0-0
     Route: 048
     Dates: start: 20220204
  17. PREDNISOLONE [Concomitant]
     Active Substance: PREDNISOLONE
     Indication: Eczema
     Dosage: 1-0-0
     Route: 048
     Dates: start: 20220324, end: 20220328

REACTIONS (1)
  - Acute kidney injury [Recovered/Resolved]

NARRATIVE: CASE EVENT DATE: 20220401
